FAERS Safety Report 11325544 (Version 2)
Quarter: 2015Q3

REPORT INFORMATION
  Report Type: Spontaneous
  Country: US (occurrence: US)
  Receive Date: 20150731
  Receipt Date: 20150813
  Transmission Date: 20151125
  Serious: No
  Sender: FDA-Public Use
  Company Number: US-AMGEN-USASP2015076196

PATIENT
  Age: 72 Year
  Sex: Male

DRUGS (2)
  1. ENBREL [Suspect]
     Active Substance: ETANERCEPT
     Indication: RHEUMATOID ARTHRITIS
     Dosage: 50 MG, QWK
     Route: 065
     Dates: start: 201505
  2. METHOTREXATE [Concomitant]
     Active Substance: METHOTREXATE
     Dosage: UNK

REACTIONS (8)
  - Oral discomfort [Unknown]
  - Dizziness [Recovered/Resolved]
  - Paraesthesia oral [Unknown]
  - Muscle disorder [Recovering/Resolving]
  - Presyncope [Unknown]
  - Jaw disorder [Recovering/Resolving]
  - Sensitivity of teeth [Unknown]
  - Malpositioned teeth [Recovering/Resolving]

NARRATIVE: CASE EVENT DATE: 2015
